FAERS Safety Report 18351091 (Version 1)
Quarter: 2020Q4

REPORT INFORMATION
  Report Type: Spontaneous
  Country: FR (occurrence: FR)
  Receive Date: 20201006
  Receipt Date: 20201006
  Transmission Date: 20210114
  Serious: Yes (Hospitalization)
  Sender: FDA-Public Use
  Company Number: FR-JNJFOC-20200941276

PATIENT
  Age: 65 Year
  Sex: Male
  Weight: 72 kg

DRUGS (11)
  1. MACROGOL 4000 [Concomitant]
     Active Substance: POLYETHYLENE GLYCOL 4000
     Route: 048
  2. MOVENTIG [Concomitant]
     Active Substance: NALOXEGOL OXALATE
     Indication: CONSTIPATION
     Route: 048
     Dates: start: 20200703
  3. DUROGESIC [Suspect]
     Active Substance: FENTANYL
     Indication: PAIN
     Route: 003
     Dates: start: 20200803, end: 20200813
  4. CISPLATINE [Concomitant]
     Active Substance: CISPLATIN
     Indication: CHOLANGIOCARCINOMA
     Route: 042
     Dates: start: 20200731, end: 20200731
  5. ORAMORPH [Suspect]
     Active Substance: MORPHINE SULFATE
     Indication: PAIN
     Route: 048
     Dates: start: 20200803, end: 20200813
  6. GEMCITABINE. [Concomitant]
     Active Substance: GEMCITABINE
     Indication: CHOLANGIOCARCINOMA
     Route: 042
     Dates: start: 20200731, end: 20200731
  7. TRIMEBUTINE [Concomitant]
     Active Substance: TRIMEBUTINE
     Route: 048
     Dates: start: 20200713
  8. KETOPROFEN. [Concomitant]
     Active Substance: KETOPROFEN
     Route: 048
     Dates: start: 20200713
  9. MACROGOL 3350 [Concomitant]
     Active Substance: POLYETHYLENE GLYCOL 3350
     Route: 048
  10. OMEPRAZOLE. [Concomitant]
     Active Substance: OMEPRAZOLE
     Route: 048
  11. PARACETAMOL [Concomitant]
     Active Substance: ACETAMINOPHEN
     Route: 048

REACTIONS (1)
  - Intestinal obstruction [Recovered/Resolved]

NARRATIVE: CASE EVENT DATE: 20200807
